FAERS Safety Report 14828243 (Version 19)
Quarter: 2022Q3

REPORT INFORMATION
  Report Type: Spontaneous
  Country: CA (occurrence: CA)
  Receive Date: 20180430
  Receipt Date: 20220923
  Transmission Date: 20221027
  Serious: Yes (Other)
  Sender: FDA-Public Use
  Company Number: CA-CELLTRION INC.-2017CA013408

PATIENT

DRUGS (35)
  1. INFLECTRA [Suspect]
     Active Substance: INFLIXIMAB-DYYB
     Indication: Crohn^s disease
     Dosage: 440 MG, (EVERY 0, 2, 6 WEEKS, THEN EVERY 8 WEEKS)
     Route: 042
     Dates: start: 20170705, end: 20180209
  2. INFLECTRA [Suspect]
     Active Substance: INFLIXIMAB-DYYB
     Dosage: UNK
     Route: 042
     Dates: start: 20171211
  3. INFLECTRA [Suspect]
     Active Substance: INFLIXIMAB-DYYB
     Dosage: 440 MG, EVERY 8 WEEKS
     Route: 042
     Dates: start: 20180209
  4. INFLECTRA [Suspect]
     Active Substance: INFLIXIMAB-DYYB
     Dosage: 5 MG/KG, EVERY 7 WEEKS
     Route: 042
  5. INFLECTRA [Suspect]
     Active Substance: INFLIXIMAB-DYYB
     Dosage: 463 MG, EVERY 7 WEEKS
     Route: 042
     Dates: start: 20180328, end: 20181203
  6. INFLECTRA [Suspect]
     Active Substance: INFLIXIMAB-DYYB
     Dosage: 5MG/KG EVERY 8 WEEKS
     Route: 042
     Dates: start: 20180705
  7. INFLECTRA [Suspect]
     Active Substance: INFLIXIMAB-DYYB
     Dosage: 463 MG, EVERY 7 WEEKS
     Route: 042
     Dates: start: 20180827
  8. INFLECTRA [Suspect]
     Active Substance: INFLIXIMAB-DYYB
     Dosage: 463 MG, EVERY 7 WEEKS
     Route: 042
     Dates: start: 20181012
  9. INFLECTRA [Suspect]
     Active Substance: INFLIXIMAB-DYYB
     Dosage: 463 MG, EVERY 7 WEEKS
     Route: 042
     Dates: start: 20181203
  10. INFLECTRA [Suspect]
     Active Substance: INFLIXIMAB-DYYB
     Dosage: 463 MG, EVERY 7 WEEKS
     Route: 042
     Dates: start: 20190122
  11. INFLECTRA [Suspect]
     Active Substance: INFLIXIMAB-DYYB
     Dosage: 500 MG (5 MG/KG ROUND) , EVERY 7 WEEKS
     Route: 042
     Dates: start: 20190122
  12. INFLECTRA [Suspect]
     Active Substance: INFLIXIMAB-DYYB
     Dosage: 463 MG, EVERY 7 WEEKS
     Route: 042
     Dates: start: 20190806
  13. INFLECTRA [Suspect]
     Active Substance: INFLIXIMAB-DYYB
     Dosage: 500 MG, EVERY 7 WEEKS
     Route: 042
     Dates: start: 20190923
  14. INFLECTRA [Suspect]
     Active Substance: INFLIXIMAB-DYYB
     Dosage: 500 MG, EVERY 7 WEEKS
     Route: 042
     Dates: start: 20191112
  15. INFLECTRA [Suspect]
     Active Substance: INFLIXIMAB-DYYB
     Dosage: 500 MG, EVERY 7 WEEKS
     Route: 042
     Dates: start: 20200102
  16. INFLECTRA [Suspect]
     Active Substance: INFLIXIMAB-DYYB
     Dosage: 500 MG, EVERY 7 WEEKS
     Route: 042
     Dates: start: 20200218
  17. INFLECTRA [Suspect]
     Active Substance: INFLIXIMAB-DYYB
     Dosage: 500 MG, EVERY 7 WEEKS
     Route: 042
     Dates: start: 20200527
  18. INFLECTRA [Suspect]
     Active Substance: INFLIXIMAB-DYYB
     Dosage: 500 MG, EVERY 7 WEEKS
     Route: 042
     Dates: start: 20200716
  19. INFLECTRA [Suspect]
     Active Substance: INFLIXIMAB-DYYB
     Dosage: 500 MG, EVERY 7 WEEKS
     Route: 042
     Dates: start: 20200903
  20. INFLECTRA [Suspect]
     Active Substance: INFLIXIMAB-DYYB
     Dosage: 500 MG, EVERY 7 WEEKS
     Route: 042
     Dates: start: 20201209
  21. INFLECTRA [Suspect]
     Active Substance: INFLIXIMAB-DYYB
     Dosage: 500 MG, EVERY 7 WEEKS
     Route: 042
     Dates: start: 20210128
  22. INFLECTRA [Suspect]
     Active Substance: INFLIXIMAB-DYYB
     Dosage: 500 MG, EVERY 7 WEEKS
     Route: 042
     Dates: start: 20210317
  23. INFLECTRA [Suspect]
     Active Substance: INFLIXIMAB-DYYB
     Dosage: 500 MG, EVERY 7 WEEKS
     Route: 042
     Dates: start: 20210506
  24. INFLECTRA [Suspect]
     Active Substance: INFLIXIMAB-DYYB
     Dosage: 500 MG, EVERY 7 WEEKS
     Route: 042
     Dates: start: 20210624
  25. INFLECTRA [Suspect]
     Active Substance: INFLIXIMAB-DYYB
     Dosage: 500 MG, EVERY 7 WEEKS
     Route: 042
     Dates: start: 20210812
  26. INFLECTRA [Suspect]
     Active Substance: INFLIXIMAB-DYYB
     Dosage: 5 MG/KG ROUNDED (500 MG), EVERY 7 WEEKS
     Route: 042
     Dates: start: 20220721
  27. INFLECTRA [Suspect]
     Active Substance: INFLIXIMAB-DYYB
     Dosage: 5 MG/KG ROUNDED (500 MG), EVERY 7 WEEKS
     Route: 042
     Dates: start: 20220721
  28. INFLECTRA [Suspect]
     Active Substance: INFLIXIMAB-DYYB
     Dosage: 5 MG/KG ROUNDED (500 MG), EVERY 7 WEEKS
     Route: 042
     Dates: start: 20220908
  29. FENTANYL [Concomitant]
     Active Substance: FENTANYL
     Indication: Sedation
     Dosage: 50 UG, UNK
  30. IMURAN [Concomitant]
     Active Substance: AZATHIOPRINE
     Dosage: 200 MG, DAILY, ADDITIONAL INFORMATION ON DRUG DISCONTINUED AS PER PHYSICIANS DECISION.
     Route: 048
     Dates: start: 20170705, end: 201807
  31. IMODIUM [Concomitant]
     Active Substance: LOPERAMIDE HYDROCHLORIDE
     Indication: Diarrhoea
     Dosage: UNK, AS NEEDED
     Route: 048
  32. IMODIUM [Concomitant]
     Active Substance: LOPERAMIDE HYDROCHLORIDE
     Dosage: 1 DF, UNK DOSE
  33. MIDAZOLAM [Concomitant]
     Active Substance: MIDAZOLAM
     Indication: Sedation
     Dosage: 2 MG, UNK
  34. METHOTREXATE [Concomitant]
     Active Substance: METHOTREXATE
     Dosage: 20 MG, WEEKLY(ON MONDAY^S)
     Route: 065
  35. CHOLESTYRAMINE [Concomitant]
     Active Substance: CHOLESTYRAMINE
     Dosage: 4 G, 2X/DAY
     Route: 065

REACTIONS (12)
  - Anastomotic ulcer [Unknown]
  - Drug level decreased [Unknown]
  - Off label use [Unknown]
  - Product use issue [Unknown]
  - Intentional product use issue [Unknown]
  - Skin disorder [Not Recovered/Not Resolved]
  - Condition aggravated [Recovering/Resolving]
  - Pruritus [Not Recovered/Not Resolved]
  - Blood pressure systolic increased [Unknown]
  - Nodule [Unknown]
  - Joint swelling [Not Recovered/Not Resolved]
  - Pain [Unknown]

NARRATIVE: CASE EVENT DATE: 20171211
